FAERS Safety Report 8902042 (Version 1)
Quarter: 2012Q4

REPORT INFORMATION
  Report Type: 
  Country: US (occurrence: US)
  Receive Date: 20121112
  Receipt Date: 20121112
  Transmission Date: 20130627
  Serious: Yes (Hospitalization)
  Sender: FDA-Public Use
  Company Number: US-ELI_LILLY_AND_COMPANY-US201211001311

PATIENT
  Age: 79 Year
  Sex: Female

DRUGS (9)
  1. FORTEO [Suspect]
     Indication: OSTEOPOROSIS POSTMENOPAUSAL
     Dosage: 20 ug, qd
     Dates: start: 20120821, end: 20120906
  2. TYLENOL                                 /SCH/ [Concomitant]
     Dosage: 1000 mg, every 6 hrs as needed
     Route: 048
  3. NORVASC [Concomitant]
     Dosage: 5 mg, qd
     Route: 048
  4. ASPIRIN [Concomitant]
     Dosage: 81 mg, qd
     Route: 048
  5. OSCAL                              /00751519/ [Concomitant]
     Dosage: 1 tablet, bid with meals
     Route: 048
  6. VITAMIN D3 [Concomitant]
     Dosage: 1000 u, qd
     Route: 048
  7. PLAVIX [Concomitant]
     Dosage: 75 mg, qd
     Route: 048
  8. THERAGRAN-M [Concomitant]
     Dosage: 1 tablet, qd
     Route: 048
  9. SPIRIVA [Concomitant]
     Dosage: 1 capsule into inhaler, qd
     Route: 055

REACTIONS (9)
  - Hypokalaemia [Unknown]
  - Hypercalcaemia [Recovered/Resolved]
  - Urinary tract infection [Unknown]
  - Back pain [Unknown]
  - Muscular weakness [Unknown]
  - Tachycardia [Recovered/Resolved]
  - Fall [Unknown]
  - Hypoxia [Recovered/Resolved]
  - Klebsiella bacteraemia [Unknown]
